FAERS Safety Report 19412095 (Version 1)
Quarter: 2021Q2

REPORT INFORMATION
  Report Type: Spontaneous
  Country: GB (occurrence: GB)
  Receive Date: 20210614
  Receipt Date: 20210614
  Transmission Date: 20210717
  Serious: Yes (Other)
  Sender: FDA-Public Use
  Company Number: GB-AMGEN-GBRSP2021087894

PATIENT
  Age: 77 Year
  Sex: Female

DRUGS (2)
  1. PROLIA [Suspect]
     Active Substance: DENOSUMAB
     Dosage: 60 MILLIGRAM, Q6MO
     Route: 065
  2. PROLIA [Suspect]
     Active Substance: DENOSUMAB
     Indication: OSTEOPOROSIS
     Dosage: 60 MILLIGRAM, Q6MO
     Route: 065
     Dates: start: 201104, end: 201805

REACTIONS (5)
  - Thoracic vertebral fracture [Unknown]
  - Multiple fractures [Unknown]
  - Adverse reaction [Unknown]
  - Loose tooth [Unknown]
  - Dizziness [Unknown]

NARRATIVE: CASE EVENT DATE: 2019
